FAERS Safety Report 16924925 (Version 4)
Quarter: 2020Q3

REPORT INFORMATION
  Report Type: Spontaneous
  Country: US (occurrence: US)
  Receive Date: 20191016
  Receipt Date: 20200803
  Transmission Date: 20201102
  Serious: No
  Sender: FDA-Public Use
  Company Number: US-PFIZER INC-2019363499

PATIENT
  Age: 72 Year
  Sex: Female
  Weight: 81.65 kg

DRUGS (5)
  1. LYRICA [Suspect]
     Active Substance: PREGABALIN
     Indication: NERVE INJURY
     Dosage: 100 MG, 1X/DAY (ONLY TAKE ONE AT NIGHT)
  2. LYRICA [Suspect]
     Active Substance: PREGABALIN
     Dosage: 75 MG, 2X/DAY
     Route: 048
     Dates: start: 20190801
  3. LYRICA [Suspect]
     Active Substance: PREGABALIN
     Dosage: 25 MG, UNK
  4. LYRICA [Suspect]
     Active Substance: PREGABALIN
     Dosage: 100 MG, 2X/DAY (1 IN MORNING, 1 AT NIGHT)
  5. LYRICA [Suspect]
     Active Substance: PREGABALIN
     Dosage: 100 MG, UNK

REACTIONS (3)
  - Intentional product use issue [Unknown]
  - Intentional product misuse [Unknown]
  - Pain [Unknown]
